FAERS Safety Report 11543885 (Version 1)
Quarter: 2015Q3

REPORT INFORMATION
  Report Type: Report from Study
  Country: IN (occurrence: IN)
  Receive Date: 20150924
  Receipt Date: 20150924
  Transmission Date: 20151125
  Serious: Yes (Death)
  Sender: FDA-Public Use
  Company Number: IN-ROCHE-1636757

PATIENT
  Age: 46 Year
  Sex: Male

DRUGS (1)
  1. EXXURA [Suspect]
     Active Substance: PEGINTERFERON ALFA-2A
     Indication: HEPATITIS C
     Dosage: 180MCG WEEKLY
     Route: 058
     Dates: start: 20150217, end: 20150324

REACTIONS (1)
  - Hepatitis C [Fatal]
